FAERS Safety Report 9924066 (Version 1)
Quarter: 2014Q1

REPORT INFORMATION
  Report Type: Spontaneous
  Country: IT (occurrence: IT)
  Receive Date: 20140225
  Receipt Date: 20140225
  Transmission Date: 20141002
  Serious: Yes (Hospitalization)
  Sender: FDA-Public Use
  Company Number: IT-MYLANLABS-2014S1003375

PATIENT
  Age: 56 Year
  Sex: Male

DRUGS (1)
  1. KETOPROFEN LYSINE [Suspect]
     Indication: PAIN IN EXTREMITY
     Dosage: 160 MG DAILY
     Route: 048
     Dates: start: 20140101, end: 20140105

REACTIONS (2)
  - Hyperbilirubinaemia [Recovered/Resolved]
  - Hypertransaminasaemia [Recovered/Resolved]
